FAERS Safety Report 9866850 (Version 1)
Quarter: 2014Q1

REPORT INFORMATION
  Report Type: Spontaneous
  Country: US (occurrence: None)
  Receive Date: 20140131
  Receipt Date: 20140131
  Transmission Date: 20141002
  Serious: Yes (Death)
  Sender: FDA-Public Use
  Company Number: 2014AP000679

PATIENT
  Age: 45 Year
  Sex: Female

DRUGS (4)
  1. VERAPAMIL HYDROCHLORIDE [Suspect]
     Dosage: ; PO
     Route: 048
  2. NORTRIPTYLINE [Suspect]
     Dosage: ; PO
     Route: 048
  3. ACETAMINOPHEN /HYDROCODONE [Suspect]
     Dosage: ; PO
     Route: 048
  4. TEMAZEPAM [Suspect]
     Dosage: ; PO
     Route: 048

REACTIONS (1)
  - Completed suicide [None]
